FAERS Safety Report 4688908-3 (Version None)
Quarter: 2005Q2

REPORT INFORMATION
  Report Type: 
  Country: None (occurrence: None)
  Receive Date: 20050613
  Receipt Date: 20050225
  Transmission Date: 20051028
  Serious: Yes (Other)
  Sender: FDA-Public Use
  Company Number: JP-ROCHE-398131

PATIENT
  Age: 38 Year
  Sex: Female

DRUGS (3)
  1. TAMIFLU [Suspect]
     Route: 048
     Dates: start: 20050219, end: 20050219
  2. TAMIFLU [Suspect]
     Route: 048
     Dates: start: 20050220, end: 20050220
  3. TAMIFLU [Suspect]
     Route: 048
     Dates: start: 20050221, end: 20050221

REACTIONS (2)
  - DIARRHOEA [None]
  - MELAENA [None]
